FAERS Safety Report 13023971 (Version 4)
Quarter: 2017Q3

REPORT INFORMATION
  Report Type: Report from Study
  Country: US (occurrence: US)
  Receive Date: 20161213
  Receipt Date: 20170906
  Transmission Date: 20171127
  Serious: Yes (Hospitalization)
  Sender: FDA-Public Use
  Company Number: US-JNJFOC-20160121500

PATIENT
  Age: 50 Year
  Sex: Male

DRUGS (1)
  1. IMBRUVICA [Suspect]
     Active Substance: IBRUTINIB
     Indication: CHRONIC LYMPHOCYTIC LEUKAEMIA
     Route: 065
     Dates: start: 20150622

REACTIONS (12)
  - Blood test abnormal [Recovering/Resolving]
  - Dysgeusia [Not Recovered/Not Resolved]
  - Gastric disorder [Recovering/Resolving]
  - Renal pain [Not Recovered/Not Resolved]
  - Product use complaint [Not Recovered/Not Resolved]
  - Back pain [Not Recovered/Not Resolved]
  - Sinusitis [Unknown]
  - Myalgia [Not Recovered/Not Resolved]
  - Hypersensitivity [Unknown]
  - Nephrolithiasis [Not Recovered/Not Resolved]
  - Obstruction gastric [Unknown]
  - Influenza [Not Recovered/Not Resolved]

NARRATIVE: CASE EVENT DATE: 201506
